FAERS Safety Report 7609368-6 (Version None)
Quarter: 2011Q3

REPORT INFORMATION
  Report Type: 
  Country: None (occurrence: None)
  Receive Date: 20110714
  Receipt Date: 20110713
  Transmission Date: 20111222
  Serious: Yes (Death, Other)
  Sender: FDA-Public Use
  Company Number: PHEH2009US02004

PATIENT
  Sex: Female

DRUGS (9)
  1. EXEMESTANE [Concomitant]
  2. BISPHOSPHONATES [Concomitant]
     Dates: start: 20060214
  3. ATIVAN [Concomitant]
  4. OXYCODONE HCL [Concomitant]
  5. CALCIUM CARBONATE [Concomitant]
  6. ACTONEL [Concomitant]
  7. FASLODEX [Concomitant]
  8. ZOMETA [Suspect]
     Indication: NEOPLASM MALIGNANT
  9. TAMOXIFEN CITRATE [Concomitant]

REACTIONS (27)
  - PAIN IN JAW [None]
  - LYMPHADENOPATHY [None]
  - BRAIN MASS [None]
  - LYMPHADENOPATHY MEDIASTINAL [None]
  - GINGIVAL SWELLING [None]
  - GASTROOESOPHAGEAL REFLUX DISEASE [None]
  - HEPATIC LESION [None]
  - MALAISE [None]
  - DEATH [None]
  - DISCOMFORT [None]
  - METASTASES TO BONE [None]
  - METASTASES TO LIVER [None]
  - LUNG HYPERINFLATION [None]
  - FISTULA DISCHARGE [None]
  - NAUSEA [None]
  - DEFORMITY [None]
  - ABSCESS ORAL [None]
  - ATELECTASIS [None]
  - ANXIETY [None]
  - DEEP VEIN THROMBOSIS [None]
  - BONE LESION [None]
  - OSTEONECROSIS OF JAW [None]
  - DYSPHAGIA [None]
  - ENDOMETRIAL HYPERTROPHY [None]
  - METASTASES TO LUNG [None]
  - INTERVERTEBRAL DISC DEGENERATION [None]
  - PLEURAL EFFUSION [None]
